FAERS Safety Report 8065377-7 (Version None)
Quarter: 2012Q1

REPORT INFORMATION
  Report Type: 
  Country: None (occurrence: None)
  Receive Date: 20120124
  Receipt Date: 20120116
  Transmission Date: 20120608
  Serious: Yes (Hospitalization)
  Sender: FDA-Public Use
  Company Number: US-BAYER-2012-006100

PATIENT
  Age: 30 Year
  Sex: Female
  Weight: 58.957 kg

DRUGS (3)
  1. IBUPROFEN [Concomitant]
     Indication: PAIN
     Dosage: 400 MG, TID
     Route: 048
  2. TYLENOL W/ CODEINE NO. 3 [Concomitant]
     Indication: PAIN
     Dosage: UNK UNK, QD
     Route: 048
  3. YASMIN [Suspect]
     Indication: CONTRACEPTION
     Dosage: UNK
     Dates: start: 20030801, end: 20060901

REACTIONS (6)
  - BACK PAIN [None]
  - ANXIETY [None]
  - PULMONARY EMBOLISM [None]
  - ASTHENIA [None]
  - PAINFUL RESPIRATION [None]
  - DYSPNOEA [None]
